FAERS Safety Report 8928865 (Version 2)
Quarter: 2013Q1

REPORT INFORMATION
  Report Type: Spontaneous
  Country: US (occurrence: US)
  Receive Date: 20121128
  Receipt Date: 20130107
  Transmission Date: 20140127
  Serious: No
  Sender: FDA-Public Use
  Company Number: US-PFIZER INC-2012296332

PATIENT
  Sex: Female

DRUGS (2)
  1. ADVIL [Suspect]
     Dosage: UNK
     Route: 048
  2. IBUPROFEN [Suspect]
     Dosage: UNK

REACTIONS (3)
  - Drug ineffective [Unknown]
  - Pain [Unknown]
  - Diarrhoea [Unknown]
